FAERS Safety Report 10237575 (Version 2)
Quarter: 2014Q3

REPORT INFORMATION
  Report Type: Spontaneous
  Country: US (occurrence: US)
  Receive Date: 20140616
  Receipt Date: 20140715
  Transmission Date: 20150326
  Serious: No
  Sender: FDA-Public Use
  Company Number: US-009507513-1406USA004796

PATIENT
  Sex: Female

DRUGS (1)
  1. SULINDAC. [Suspect]
     Active Substance: SULINDAC
     Dosage: 100 MG, QD
     Route: 048

REACTIONS (1)
  - Drug hypersensitivity [Unknown]
